FAERS Safety Report 19755397 (Version 1)
Quarter: 2021Q3

REPORT INFORMATION
  Report Type: Spontaneous
  Country: AU (occurrence: AU)
  Receive Date: 20210827
  Receipt Date: 20210827
  Transmission Date: 20211014
  Serious: Yes (Other)
  Sender: FDA-Public Use
  Company Number: AU-COLLEGIUM PHARMACEUTICAL, INC.-2021CGM00979

PATIENT
  Age: 69 Year
  Sex: Female

DRUGS (11)
  1. SUBOXONE [Concomitant]
     Active Substance: BUPRENORPHINE HYDROCHLORIDE\NALOXONE HYDROCHLORIDE
  2. PHYSEPTONE [Concomitant]
     Active Substance: METHADONE HYDROCHLORIDE
  3. NORSPAN [Concomitant]
     Active Substance: BUPRENORPHINE
  4. NORSPAN [Concomitant]
     Active Substance: BUPRENORPHINE
  5. LYRICA [Concomitant]
     Active Substance: PREGABALIN
  6. MORPHINE [Concomitant]
     Active Substance: MORPHINE
  7. PHYSEPTONE [Concomitant]
     Active Substance: METHADONE HYDROCHLORIDE
  8. SUBOXONE [Concomitant]
     Active Substance: BUPRENORPHINE HYDROCHLORIDE\NALOXONE HYDROCHLORIDE
  9. TAPENTADOL [Suspect]
     Active Substance: TAPENTADOL
     Indication: PAIN
     Dosage: 200 MG
  10. PHYSEPTONE [Concomitant]
     Active Substance: METHADONE HYDROCHLORIDE
  11. SUBOXONE [Concomitant]
     Active Substance: BUPRENORPHINE HYDROCHLORIDE\NALOXONE HYDROCHLORIDE

REACTIONS (8)
  - Somnolence [Recovering/Resolving]
  - Dysarthria [Recovering/Resolving]
  - Substance use disorder [Unknown]
  - Dyspnoea [Recovered/Resolved]
  - Parkinson^s disease [Unknown]
  - Drug dependence [Unknown]
  - Basal cell carcinoma [Unknown]
  - Stupor [Recovering/Resolving]
